FAERS Safety Report 23401526 (Version 4)
Quarter: 2024Q4

REPORT INFORMATION
  Report Type: Spontaneous
  Country: US (occurrence: US)
  Receive Date: 20240115
  Receipt Date: 20241009
  Transmission Date: 20250114
  Serious: Yes (Other)
  Sender: PFIZER
  Company Number: US-PFIZER INC-PV202300083947

PATIENT
  Age: 72 Year
  Sex: Female
  Weight: 94.8 kg

DRUGS (2)
  1. IBRANCE [Suspect]
     Active Substance: PALBOCICLIB
     Indication: Breast cancer female
     Dosage: ONCE DAILY FOR 21 DAYS AND THEN 7 DAYS OFF
     Route: 048
     Dates: start: 2017
  2. LETROZOLE [Concomitant]
     Active Substance: LETROZOLE
     Dosage: UNK

REACTIONS (8)
  - Knee arthroplasty [Unknown]
  - Illness [Unknown]
  - Malaise [Unknown]
  - Product packaging difficult to open [Unknown]
  - Product package associated injury [Unknown]
  - Impaired healing [Unknown]
  - Gastrointestinal disorder [Unknown]
  - Nausea [Unknown]
